FAERS Safety Report 24684887 (Version 1)
Quarter: 2024Q4

REPORT INFORMATION
  Report Type: Spontaneous
  Country: BE (occurrence: BE)
  Receive Date: 20241202
  Receipt Date: 20241202
  Transmission Date: 20250115
  Serious: Yes (Death)
  Sender: AUROBINDO
  Company Number: BE-AUROBINDO-AUR-APL-2024-057892

PATIENT
  Age: 62 Year
  Sex: Female

DRUGS (9)
  1. CARBOPLATIN [Suspect]
     Active Substance: CARBOPLATIN
     Indication: Adenocarcinoma
     Dosage: UNK UNK, CYCLICAL, TEN CYCLES
     Route: 065
     Dates: start: 202111, end: 202208
  2. IRINOTECAN [Suspect]
     Active Substance: IRINOTECAN
     Indication: Adenocarcinoma
     Dosage: 180 MILLIGRAM/SQ. METER,EVERY THREE WEEKS
     Route: 065
     Dates: start: 202302
  3. CISPLATIN [Suspect]
     Active Substance: CISPLATIN
     Indication: Adenocarcinoma
     Dosage: UNK, CYCLICAL (FOUR CYCLES)
     Route: 065
  4. CAPECITABINE [Suspect]
     Active Substance: CAPECITABINE
     Indication: Adenocarcinoma
     Dosage: 625 MILLIGRAM/SQ. METER
     Route: 065
     Dates: start: 202209
  5. TEMOZOLOMIDE [Suspect]
     Active Substance: TEMOZOLOMIDE
     Indication: Adenocarcinoma
     Dosage: 100 MILLIGRAM/SQ. METER
     Route: 065
     Dates: start: 202209
  6. EVEROLIMUS [Suspect]
     Active Substance: EVEROLIMUS
     Indication: Adenocarcinoma
     Dosage: 5 MILLIGRAM, DAILY
     Route: 065
     Dates: start: 202211
  7. FLUOROURACIL [Suspect]
     Active Substance: FLUOROURACIL
     Indication: Adenocarcinoma
     Dosage: 2400 MILLIGRAM/SQ. METER, CYCLICAL
     Route: 065
     Dates: start: 202302
  8. ETOPOSIDE [Suspect]
     Active Substance: ETOPOSIDE
     Indication: Adenocarcinoma
     Dosage: 100 MILLIGRAM, DAILY, TEN CYCLES
     Route: 065
     Dates: start: 202111, end: 202208
  9. ETOPOSIDE [Suspect]
     Active Substance: ETOPOSIDE
     Dosage: UNK, CYCLICAL (FOUR CYCLES)
     Route: 065

REACTIONS (1)
  - Drug ineffective [Fatal]

NARRATIVE: CASE EVENT DATE: 20210801
